FAERS Safety Report 5153408-3 (Version None)
Quarter: 2006Q4

REPORT INFORMATION
  Report Type: 
  Country: None (occurrence: None)
  Receive Date: 20061114
  Receipt Date: 20061030
  Transmission Date: 20070319
  Serious: Yes (Hospitalization)
  Sender: FDA-Public Use
  Company Number: STI-2006-00668

PATIENT
  Age: 55 Year
  Sex: Female

DRUGS (4)
  1. 222A ERYTHROMYCIN TOPICAL (UNSPECIFIED) (ERYTHROMYCIN TOPICAL) (ERYTHR [Suspect]
  2. OMEPRAZOLE [Concomitant]
  3. SIMVASTATIN [Concomitant]
  4. CLINDAMYCIN [Suspect]

REACTIONS (3)
  - NAUSEA [None]
  - VERTIGO [None]
  - VOMITING [None]
